FAERS Safety Report 8505013-6 (Version None)
Quarter: 2012Q3

REPORT INFORMATION
  Report Type: 
  Country: None (occurrence: None)
  Receive Date: 20120712
  Receipt Date: 20120704
  Transmission Date: 20120928
  Serious: Yes (Hospitalization)
  Sender: FDA-Public Use
  Company Number: BG-UCBSA-057921

PATIENT
  Age: 76 Year
  Sex: Male
  Weight: 80 kg

DRUGS (10)
  1. MADOPAR [Concomitant]
     Dosage: 3X2 TABS
  2. DIPYRONE INJ [Concomitant]
     Indication: CHEST PAIN
     Route: 048
     Dates: start: 20120519, end: 20120520
  3. NOOTROPIL [Concomitant]
     Dosage: 1200MG
  4. Y MAX [Concomitant]
  5. DIPYRONE INJ [Concomitant]
     Indication: BACK PAIN
     Route: 048
     Dates: start: 20120519, end: 20120520
  6. NOOTROPIL [Concomitant]
     Dosage: 1200+1200+0MG
  7. FUROSEMIDE [Concomitant]
  8. ROTIGOTINE [Suspect]
     Indication: PARKINSON'S DISEASE
     Route: 062
     Dates: start: 20120518, end: 20120520
  9. CEPHALEXIN [Concomitant]
     Indication: LUNG INFECTION
     Route: 048
     Dates: start: 20120519, end: 20120520
  10. DIROTON [Concomitant]
     Dosage: 2X5MG

REACTIONS (1)
  - CARDIAC FAILURE CHRONIC [None]
